FAERS Safety Report 20604777 (Version 1)
Quarter: 2022Q1

REPORT INFORMATION
  Report Type: Spontaneous
  Country: TR (occurrence: TR)
  Receive Date: 20220317
  Receipt Date: 20220317
  Transmission Date: 20220423
  Serious: Yes (Other)
  Sender: FDA-Public Use
  Company Number: TR-SUN PHARMACEUTICAL INDUSTRIES LTD-2022R1-329592

PATIENT
  Weight: 2.545 kg

DRUGS (3)
  1. PROPYLTHIOURACIL [Suspect]
     Active Substance: PROPYLTHIOURACIL
     Indication: Hypothyroidism
     Dosage: 50 MILLIGRAM, DAILY
     Route: 064
  2. LIOTHYRONINE [Suspect]
     Active Substance: LIOTHYRONINE
     Indication: Goitre
     Dosage: 25 MICROGRAM, DAILY
     Route: 064
  3. LIOTHYRONINE [Suspect]
     Active Substance: LIOTHYRONINE
     Dosage: 50 MICROGRAM, DAILY
     Route: 064

REACTIONS (6)
  - Foetal exposure during pregnancy [Unknown]
  - Premature baby [Unknown]
  - Ascites [Recovered/Resolved]
  - Polyhydramnios [Unknown]
  - Hypothyroidism [Recovered/Resolved]
  - Goitre [Recovered/Resolved]
